FAERS Safety Report 18093670 (Version 1)
Quarter: 2020Q3

REPORT INFORMATION
  Report Type: Spontaneous
  Country: US (occurrence: US)
  Receive Date: 20200730
  Receipt Date: 20200730
  Transmission Date: 20201103
  Serious: No
  Sender: FDA-Public Use
  Company Number: US-MSNLABS-2020MSNSPO00139

PATIENT

DRUGS (3)
  1. PREGABALIN CAPSULES 100 MG [Suspect]
     Active Substance: PREGABALIN
     Indication: NEURALGIA
     Route: 065
  2. CLONAZEPAM. [Concomitant]
     Active Substance: CLONAZEPAM
     Indication: PRODUCT USED FOR UNKNOWN INDICATION
     Route: 065
  3. TRAZODONE [Concomitant]
     Active Substance: TRAZODONE HYDROCHLORIDE
     Indication: PRODUCT USED FOR UNKNOWN INDICATION
     Dosage: 2 X 100 MG TABLETS AT BED TIME
     Route: 065

REACTIONS (3)
  - Memory impairment [Recovering/Resolving]
  - Peripheral swelling [Unknown]
  - Joint swelling [Unknown]
